FAERS Safety Report 6528085-7 (Version None)
Quarter: 2010Q1

REPORT INFORMATION
  Report Type: 
  Country: None (occurrence: None)
  Receive Date: 20100105
  Receipt Date: 20100105
  Transmission Date: 20100710
  Serious: Yes (Hospitalization)
  Sender: FDA-Public Use
  Company Number: None

PATIENT
  Age: 20 Year
  Sex: Female
  Weight: 69.5 kg

DRUGS (1)
  1. PSEUDOEPHEDRINE [Suspect]
     Indication: NASOPHARYNGITIS
     Dosage: 30 MG PRN PO
     Route: 048
     Dates: start: 20091226, end: 20091228

REACTIONS (2)
  - PALPITATIONS [None]
  - SUPRAVENTRICULAR TACHYCARDIA [None]
